FAERS Safety Report 5356342-9 (Version None)
Quarter: 2007Q2

REPORT INFORMATION
  Report Type: 
  Country: None (occurrence: None)
  Receive Date: 20070613
  Receipt Date: 20070607
  Transmission Date: 20071010
  Serious: Yes (Other)
  Sender: FDA-Public Use
  Company Number: FR-PFIZER INC-2007046698

PATIENT
  Sex: Male

DRUGS (1)
  1. SOMAVERT [Suspect]

REACTIONS (1)
  - LEUKOPENIA [None]
